FAERS Safety Report 6028210-0 (Version None)
Quarter: 2009Q1

REPORT INFORMATION
  Report Type: 
  Country: None (occurrence: None)
  Receive Date: 20090106
  Receipt Date: 20081224
  Transmission Date: 20090719
  Serious: Yes (Death, Hospitalization, Other)
  Sender: FDA-Public Use
  Company Number: US-CELGENEUS-163-21880-08110855

PATIENT
  Sex: Male
  Weight: 64 kg

DRUGS (16)
  1. REVLIMID [Suspect]
     Indication: MULTIPLE MYELOMA
     Route: 048
     Dates: start: 20080814, end: 20081031
  2. DEXAMETHASONE [Suspect]
     Indication: MULTIPLE MYELOMA
     Route: 065
  3. VELCADE [Suspect]
     Route: 065
  4. DOXIL [Suspect]
     Route: 065
  5. HIGH DOSE STEROIDS [Suspect]
     Route: 065
  6. OXYCONTIN [Concomitant]
     Indication: DRUG USE FOR UNKNOWN INDICATION
     Route: 065
  7. OXYCODONE [Concomitant]
     Indication: PAIN
     Route: 065
  8. FENTANYL-100 [Concomitant]
     Indication: DRUG USE FOR UNKNOWN INDICATION
     Route: 062
  9. CIPROFLOXACIN [Concomitant]
     Route: 048
     Dates: start: 20081106
  10. LOVENOX [Concomitant]
     Indication: DRUG USE FOR UNKNOWN INDICATION
     Dosage: 50 UNITS
     Route: 058
  11. LIPITOR [Concomitant]
     Indication: DRUG USE FOR UNKNOWN INDICATION
     Route: 065
  12. PROZAC [Concomitant]
     Indication: DRUG USE FOR UNKNOWN INDICATION
     Route: 065
  13. PEPCID AC [Concomitant]
     Indication: DRUG USE FOR UNKNOWN INDICATION
     Route: 065
  14. VELCADE [Concomitant]
     Route: 065
     Dates: start: 20080101
  15. DOXIL [Concomitant]
     Route: 065
     Dates: start: 20080101
  16. HIGH DOSE STEROIDS [Concomitant]
     Route: 065
     Dates: start: 20080101

REACTIONS (5)
  - BACTERAEMIA [None]
  - MENINGITIS [None]
  - MULTIPLE MYELOMA [None]
  - PLATELET COUNT DECREASED [None]
  - PNEUMONIA STREPTOCOCCAL [None]
